FAERS Safety Report 11174702 (Version 1)
Quarter: 2015Q2

REPORT INFORMATION
  Report Type: Report from Study
  Country: US (occurrence: US)
  Receive Date: 20150609
  Receipt Date: 20150609
  Transmission Date: 20150821
  Serious: Yes (Other)
  Sender: FDA-Public Use
  Company Number: US-ABBVIE-15K-163-1402953-00

PATIENT
  Sex: Female

DRUGS (2)
  1. HUMIRA [Suspect]
     Active Substance: ADALIMUMAB
     Indication: RHEUMATOID ARTHRITIS
     Route: 058
     Dates: start: 20141024, end: 2015
  2. METHOTREXATE [Concomitant]
     Active Substance: METHOTREXATE
     Indication: PRODUCT USED FOR UNKNOWN INDICATION

REACTIONS (7)
  - Dizziness [Unknown]
  - Cough [Unknown]
  - Dyspnoea [Unknown]
  - Rash papular [Unknown]
  - Headache [Unknown]
  - Decreased appetite [Unknown]
  - Viral infection [Unknown]

NARRATIVE: CASE EVENT DATE: 2015
